FAERS Safety Report 12459506 (Version 1)
Quarter: 2016Q2

REPORT INFORMATION
  Report Type: Spontaneous
  Country: US (occurrence: None)
  Receive Date: 20160610
  Receipt Date: 20160610
  Transmission Date: 20160815
  Serious: No
  Sender: FDA-Public Use
  Company Number: None

PATIENT
  Age: 55 Year
  Sex: Female

DRUGS (13)
  1. POTASSIUM [Concomitant]
     Active Substance: POTASSIUM
  2. ZOMIG [Concomitant]
     Active Substance: ZOLMITRIPTAN
  3. HARVONI [Suspect]
     Active Substance: LEDIPASVIR\SOFOSBUVIR
     Indication: CHRONIC HEPATITIS C
     Route: 048
     Dates: start: 20160520
  4. ZINC [Concomitant]
     Active Substance: ZINC\ZINC CHLORIDE
  5. VITAMIN B12 [Concomitant]
     Active Substance: CYANOCOBALAMIN
  6. PROTONIX [Concomitant]
     Active Substance: PANTOPRAZOLE SODIUM
  7. ARMOUR THYRO [Concomitant]
  8. LOESTRIN NOS [Concomitant]
     Active Substance: ETHINYL ESTRADIOL\NORETHINDRONE ACETATE
  9. SONATA [Concomitant]
     Active Substance: ZALEPLON
  10. BIOTIN [Concomitant]
     Active Substance: BIOTIN
  11. TYLENOL [Concomitant]
     Active Substance: ACETAMINOPHEN
  12. MAGNESIUM [Concomitant]
     Active Substance: MAGNESIUM
  13. LOSARTAN. [Concomitant]
     Active Substance: LOSARTAN

REACTIONS (1)
  - Headache [None]

NARRATIVE: CASE EVENT DATE: 201605
